FAERS Safety Report 20066993 (Version 1)
Quarter: 2021Q4

REPORT INFORMATION
  Report Type: Spontaneous
  Country: BR (occurrence: BR)
  Receive Date: 20211115
  Receipt Date: 20211115
  Transmission Date: 20220303
  Serious: Yes (Hospitalization, Other)
  Sender: FDA-Public Use
  Company Number: None

PATIENT
  Age: 80 Year
  Sex: Female
  Weight: 64.5 kg

DRUGS (1)
  1. JANUMET [Suspect]
     Active Substance: METFORMIN HYDROCHLORIDE\SITAGLIPTIN PHOSPHATE
     Indication: Type 2 diabetes mellitus
     Dosage: 1 TABLET - 50/850MG - AT MORNING AND 1 TABLET AT NIGHT
     Dates: start: 2013

REACTIONS (4)
  - Myocardial infarction [Recovered/Resolved]
  - Brain hypoxia [Unknown]
  - Anaemia [Unknown]
  - Arterial catheterisation [Unknown]

NARRATIVE: CASE EVENT DATE: 20200101
